FAERS Safety Report 23785099 (Version 1)
Quarter: 2024Q2

REPORT INFORMATION
  Report Type: Spontaneous
  Country: US (occurrence: None)
  Receive Date: 20240425
  Receipt Date: 20240425
  Transmission Date: 20240716
  Serious: No
  Sender: FDA-Public Use
  Company Number: None

PATIENT
  Age: 70 Year
  Sex: Male
  Weight: 110.25 kg

DRUGS (1)
  1. ZEPBOUND [Suspect]
     Active Substance: TIRZEPATIDE
     Indication: Weight decreased
     Dosage: 7.5 MG ONCE WEEKLY SUBCUTANEOUS
     Route: 058
     Dates: start: 20240405

REACTIONS (3)
  - Regurgitation [None]
  - Insomnia [None]
  - Dehydration [None]

NARRATIVE: CASE EVENT DATE: 20230417
